FAERS Safety Report 8888798 (Version 1)
Quarter: 2012Q4

REPORT INFORMATION
  Report Type: 
  Country: US (occurrence: US)
  Receive Date: 20121106
  Receipt Date: 20121106
  Transmission Date: 20130627
  Serious: Yes (Hospitalization)
  Sender: FDA-Public Use
  Company Number: US-ASTRAZENECA-2012SE82908

PATIENT
  Age: 54 Year
  Sex: Female

DRUGS (3)
  1. SEROQUEL XR [Suspect]
     Indication: SLEEP DISORDER
     Route: 048
  2. SEROQUEL XR [Suspect]
     Indication: ANXIETY
     Route: 048
  3. TOPROL XL [Suspect]
     Route: 048

REACTIONS (2)
  - Pneumonia [Unknown]
  - Off label use [Unknown]
